FAERS Safety Report 8452456-5 (Version None)
Quarter: 2012Q2

REPORT INFORMATION
  Report Type: 
  Country: None (occurrence: None)
  Receive Date: 20120323
  Receipt Date: 20111102
  Transmission Date: 20120825
  Serious: Yes (Other)
  Sender: FDA-Public Use
  Company Number: 163-21880-11110553

PATIENT
  Age: 79 Year
  Sex: Male
  Weight: 94.8018 kg

DRUGS (13)
  1. ADVAIR HFA [Concomitant]
  2. SPIRIVA [Concomitant]
  3. LORAZEPAM [Concomitant]
  4. TRESSALON PERLE (BENZONATATE) [Concomitant]
  5. TOPROL-XL [Concomitant]
  6. AMBIEN [Concomitant]
  7. TRICOR [Concomitant]
  8. PROTONIX [Concomitant]
  9. PREDNISONE [Concomitant]
  10. BENICAR [Concomitant]
  11. LENALIDOMIDE [Suspect]
     Indication: MYELODYSPLASTIC SYNDROME
     Dosage: 10 MG, PO
     Route: 048
     Dates: start: 20110801, end: 20111102
  12. LEXAPRO [Concomitant]
  13. BENTYL [Concomitant]

REACTIONS (1)
  - WHITE BLOOD CELL COUNT DECREASED [None]
